FAERS Safety Report 5218546-5 (Version None)
Quarter: 2006Q4

REPORT INFORMATION
  Report Type: 
  Country: None (occurrence: None)
  Receive Date: 20061121
  Receipt Date: 20061012
  Transmission Date: 20070319
  Serious: No
  Sender: FDA-Public Use
  Company Number: TPA2006A01806

PATIENT
  Sex: Male

DRUGS (1)
  1. ROZEREM [Suspect]
     Indication: DRUG USE FOR UNKNOWN INDICATION
     Dosage: 8 MG, HS, PER ORAL
     Route: 048

REACTIONS (2)
  - COGNITIVE DISORDER [None]
  - CONFUSIONAL STATE [None]
